FAERS Safety Report 19069585 (Version 1)
Quarter: 2021Q1

REPORT INFORMATION
  Report Type: Report from Study
  Country: US (occurrence: US)
  Receive Date: 20210329
  Receipt Date: 20210329
  Transmission Date: 20210420
  Serious: Yes (Other)
  Sender: FDA-Public Use
  Company Number: US-AMGEN-USASL2021023905

PATIENT
  Age: 20 Year
  Sex: Female

DRUGS (4)
  1. ENBREL [Suspect]
     Active Substance: ETANERCEPT
     Dosage: 50 MILLIGRAM, QWK
     Route: 065
  2. ENBREL [Suspect]
     Active Substance: ETANERCEPT
     Dosage: 50 MILLIGRAM, QWK
     Route: 065
  3. ENBREL [Suspect]
     Active Substance: ETANERCEPT
     Dosage: 50 MILLIGRAM, QWK
     Route: 065
  4. ENBREL [Suspect]
     Active Substance: ETANERCEPT
     Indication: RHEUMATOID ARTHRITIS
     Dosage: 50 MILLIGRAM, QWK
     Route: 065

REACTIONS (12)
  - Pain [Not Recovered/Not Resolved]
  - Injection site swelling [Recovering/Resolving]
  - Injection site rash [Recovering/Resolving]
  - Injection site mass [Recovering/Resolving]
  - Immunodeficiency [Unknown]
  - Injection site pruritus [Recovering/Resolving]
  - Incorrect dose administered by device [Unknown]
  - Mouth swelling [Not Recovered/Not Resolved]
  - Accidental exposure to product [Unknown]
  - Aphthous ulcer [Not Recovered/Not Resolved]
  - Lip swelling [Not Recovered/Not Resolved]
  - Viral infection [Not Recovered/Not Resolved]

NARRATIVE: CASE EVENT DATE: 202002
